FAERS Safety Report 6640874-7 (Version None)
Quarter: 2010Q1

REPORT INFORMATION
  Report Type: 
  Country: None (occurrence: None)
  Receive Date: 20100318
  Receipt Date: 20100305
  Transmission Date: 20100710
  Serious: Yes (Hospitalization)
  Sender: FDA-Public Use
  Company Number: JP-AMGEN-US368262

PATIENT
  Sex: Female
  Weight: 51 kg

DRUGS (6)
  1. ENBREL [Suspect]
     Indication: RHEUMATOID ARTHRITIS
     Route: 058
     Dates: end: 20090714
  2. ENBREL [Suspect]
     Dosage: LYOPHILIZED: 25 MG PER WEEK
     Route: 058
     Dates: start: 20060608
  3. INFLIXIMAB [Suspect]
     Dosage: UNSPECIFIED
     Dates: start: 20040101
  4. RHEUMATREX [Suspect]
     Indication: RHEUMATOID ARTHRITIS
     Route: 048
     Dates: start: 20070730, end: 20090717
  5. ACTONEL [Concomitant]
     Indication: OSTEOPOROSIS PROPHYLAXIS
     Route: 048
  6. FOLIC ACID [Concomitant]
     Route: 048
     Dates: end: 20090717

REACTIONS (1)
  - NEOPLASM MALIGNANT [None]
